FAERS Safety Report 10224412 (Version 1)
Quarter: 2014Q1

REPORT INFORMATION
  Report Type: Spontaneous
  Country: US (occurrence: None)
  Receive Date: 20140306
  Receipt Date: 20140306
  Transmission Date: 20141002
  Serious: Yes (Other)
  Sender: FDA-Public Use
  Company Number: 163-21880-13093194

PATIENT
  Sex: Male

DRUGS (12)
  1. REVLIMID (LENALIDOMIDE) (CAPSULES) [Suspect]
     Indication: PLASMA CELL MYELOMA
     Route: 048
     Dates: start: 200907
  2. ZOMETA (ZOLEDRONIC ACID) (UNKNOWN) [Suspect]
     Indication: PRODUCT USED FOR UNKNOWN INDICATION
     Dosage: UNK
  3. PENICILLIN (PENICILLIN NOS) (UNKNOWN) [Suspect]
     Indication: PRODUCT USED FOR UNKNOWN INDICATION
  4. DEXAMETHASONE (DEXAMETHASONE) (UNKNOWN) [Concomitant]
  5. AREDIA (PAMIDRONATE DISODIUM) (UNKNOWN) [Concomitant]
  6. ACYCLOVIR (ACICLOVIR) (UNKNOWN) [Concomitant]
  7. ECOTRIN (ACETYLSALICYLIC ACID) (UNKNOWN) [Concomitant]
  8. PRILOSEC (OMEPRAZOLE) (UNKNOWN) [Concomitant]
  9. KYPROLIS (CARFILZOMIB) (UNKNOWN) [Concomitant]
  10. TYLENOL EXTRA STRENGTH (PARACETAMOL) (UNKNOWN) [Concomitant]
  11. VITAMIN D3 (COLECALCIFEROL) (UNKNOWN) [Concomitant]
  12. VELCADE (BORTEZOMIB) (UNKNOWN) [Concomitant]

REACTIONS (3)
  - Hypersensitivity [None]
  - Infection [None]
  - Rash [None]
